FAERS Safety Report 7596611-5 (Version None)
Quarter: 2011Q3

REPORT INFORMATION
  Report Type: 
  Country: None (occurrence: None)
  Receive Date: 20110708
  Receipt Date: 20110701
  Transmission Date: 20111222
  Serious: No
  Sender: FDA-Public Use
  Company Number: US-JNJFOC-20110701874

PATIENT
  Sex: Female
  Weight: 117.48 kg

DRUGS (3)
  1. UNKNOWN MEDICATION [Concomitant]
  2. FENTANYL-100 [Suspect]
     Indication: ROTATOR CUFF SYNDROME
     Dosage: NDC:0781-7241-55
     Route: 062
  3. FENTANYL-100 [Suspect]
     Indication: FIBROMYALGIA
     Dosage: NDC:0781-7241-55
     Route: 062

REACTIONS (2)
  - WRONG TECHNIQUE IN DRUG USAGE PROCESS [None]
  - PRODUCT QUALITY ISSUE [None]
